FAERS Safety Report 6604389-4 (Version None)
Quarter: 2010Q1

REPORT INFORMATION
  Report Type: 
  Country: None (occurrence: None)
  Receive Date: 20100226
  Receipt Date: 20090916
  Transmission Date: 20100710
  Serious: No
  Sender: FDA-Public Use
  Company Number: A0807673A

PATIENT
  Age: 57 Year
  Sex: Female

DRUGS (2)
  1. LAMICTAL CD [Suspect]
     Indication: ANXIETY
     Dosage: 25MG SINGLE DOSE
     Route: 048
     Dates: start: 20090728, end: 20090728
  2. CLARITIN-D [Concomitant]

REACTIONS (4)
  - EYELID OEDEMA [None]
  - LIP SWELLING [None]
  - RASH [None]
  - SWELLING FACE [None]
